FAERS Safety Report 19872132 (Version 1)
Quarter: 2021Q3

REPORT INFORMATION
  Report Type: Spontaneous
  Country: US (occurrence: US)
  Receive Date: 20210921
  Receipt Date: 20210921
  Transmission Date: 20211014
  Serious: Yes (Hospitalization)
  Sender: FDA-Public Use
  Company Number: None

PATIENT
  Age: 50 Year
  Sex: Male

DRUGS (1)
  1. MAVYRET [Suspect]
     Active Substance: GLECAPREVIR\PIBRENTASVIR
     Indication: HEPATITIS C
     Dosage: 100/400 DAILY ORAL
     Route: 048
     Dates: start: 20210911

REACTIONS (3)
  - Fatigue [None]
  - Liver operation [None]
  - Hepatic lesion [None]

NARRATIVE: CASE EVENT DATE: 20210921
